FAERS Safety Report 4602355-1 (Version None)
Quarter: 2005Q2

REPORT INFORMATION
  Report Type: 
  Country: None (occurrence: None)
  Receive Date: 20050223
  Receipt Date: 20041103
  Transmission Date: 20051028
  Serious: No
  Sender: FDA-Public Use
  Company Number: PHEH2004US11049

PATIENT
  Age: 43 Year
  Sex: Female

DRUGS (4)
  1. ZELNORM [Suspect]
     Indication: CONSTIPATION
     Dosage: 2 MG, BID, ORAL
     Route: 048
     Dates: start: 20040701
  2. SYNTHROID [Concomitant]
  3. ESTROGEN NOS (ESTROGEN NOS) [Concomitant]
  4. VITAMINS (NO INGREDIENTS/SUBSTANCES) [Concomitant]

REACTIONS (2)
  - ABDOMINAL PAIN [None]
  - ALOPECIA [None]
